FAERS Safety Report 8153671-0 (Version None)
Quarter: 2012Q1

REPORT INFORMATION
  Report Type: 
  Country: None (occurrence: None)
  Receive Date: 20120221
  Receipt Date: 20120215
  Transmission Date: 20120608
  Serious: Yes (Other)
  Sender: FDA-Public Use
  Company Number: US-BAYER-2012-016760

PATIENT
  Age: 46 Year
  Sex: Female

DRUGS (5)
  1. ROZEREM [Concomitant]
     Dosage: 8 MG, UNK
     Dates: start: 20080114
  2. COUMADIN [Concomitant]
     Dosage: 10 MG, UNK
  3. IBUPROFEN TABLETS [Concomitant]
     Dosage: 800 MG, UNK
     Dates: start: 20080313
  4. YASMIN [Suspect]
     Indication: PRODUCT USED FOR UNKNOWN INDICATION
     Dosage: UNK
     Dates: end: 20080328
  5. VICODIN [Concomitant]

REACTIONS (5)
  - VARICOSE VEIN [None]
  - OEDEMA PERIPHERAL [None]
  - DEEP VEIN THROMBOSIS [None]
  - PAIN IN EXTREMITY [None]
  - THROMBOSIS [None]
